FAERS Safety Report 4791180-7 (Version None)
Quarter: 2005Q4

REPORT INFORMATION
  Report Type: 
  Country: None (occurrence: None)
  Receive Date: 20051005
  Receipt Date: 20050915
  Transmission Date: 20060501
  Serious: Yes (Other)
  Sender: FDA-Public Use
  Company Number: DE_050916961

PATIENT
  Age: 59 Year
  Sex: Male
  Weight: 80 kg

DRUGS (7)
  1. HUMALOG [Suspect]
     Indication: DIABETES MELLITUS NON-INSULIN-DEPENDENT
     Dates: start: 19970101, end: 20041101
  2. LEVOTHYROXINE SODIUM [Concomitant]
  3. SEMILENTE (SEMILENTTE) [Concomitant]
  4. METOPROLOL SUCCINATE [Concomitant]
  5. ACERBON (LISINOPRIL) [Concomitant]
  6. TRIARESE [Concomitant]
  7. ADALAT [Concomitant]

REACTIONS (1)
  - LARYNGEAL CANCER [None]
